FAERS Safety Report 4578119-4 (Version None)
Quarter: 2005Q1

REPORT INFORMATION
  Report Type: 
  Country: None (occurrence: None)
  Receive Date: 20050209
  Receipt Date: 20050127
  Transmission Date: 20050727
  Serious: Yes (Hospitalization, Other)
  Sender: FDA-Public Use
  Company Number: 212169

PATIENT
  Age: 69 Year
  Sex: Male
  Weight: 110 kg

DRUGS (7)
  1. MABTHERA (RITUXIMAB) CONC FOR SOLUTION FOR INFUSION [Suspect]
     Indication: CHRONIC LYMPHOCYTIC LEUKAEMIA
     Dosage: INTRAVENOUS
     Route: 042
     Dates: start: 20031215
  2. CYCLOPHOSPHAMIDE [Suspect]
     Indication: CHRONIC LYMPHOCYTIC LEUKAEMIA
     Route: 042
     Dates: start: 20031215
  3. FLUDARABINE PHOSPHATE [Suspect]
     Indication: CHRONIC LYMPHOCYTIC LEUKAEMIA
     Route: 042
     Dates: start: 20031215
  4. NORVASC [Concomitant]
  5. DYTIDE H (HYDROCHLOROTHIAZIDE, TRIAMTERENE) [Concomitant]
  6. NEUPOGEN [Concomitant]
  7. NEXIUM [Concomitant]

REACTIONS (2)
  - DYSPHAGIA [None]
  - ERYSIPELAS [None]
